FAERS Safety Report 16884392 (Version 13)
Quarter: 2021Q3

REPORT INFORMATION
  Report Type: Report from Study
  Country: CN (occurrence: CN)
  Receive Date: 20191004
  Receipt Date: 20210805
  Transmission Date: 20211014
  Serious: Yes (Hospitalization)
  Sender: FDA-Public Use
  Company Number: CN-ROCHE-2422655

PATIENT
  Age: 39 Year
  Sex: Male
  Weight: 81 kg

DRUGS (47)
  1. VITAMIN C [Concomitant]
     Active Substance: ASCORBIC ACID
     Route: 050
     Dates: start: 20191126, end: 20191126
  2. CALCIUM GLUCONATE. [Concomitant]
     Active Substance: CALCIUM GLUCONATE
     Dosage: 1 OTHER
     Route: 050
     Dates: start: 20201126, end: 20201127
  3. OMEPRAZOLE. [Concomitant]
     Active Substance: OMEPRAZOLE
     Route: 048
     Dates: start: 20191129, end: 20191204
  4. VITAMIN C [Concomitant]
     Active Substance: ASCORBIC ACID
     Dosage: 1 AMPULE
     Route: 050
     Dates: start: 20201126, end: 20201127
  5. POTASSIUM CHLORIDE. [Concomitant]
     Active Substance: POTASSIUM CHLORIDE
     Route: 050
     Dates: start: 20191126, end: 20191126
  6. POLYETHYLENE GLYCOL ELECTROLYTES [Concomitant]
     Dosage: 2 OTHER
     Route: 048
     Dates: start: 20191125, end: 20191125
  7. PARACETAMOL [Concomitant]
     Active Substance: ACETAMINOPHEN
     Indication: PAIN
  8. MAI ZHI LING PIAN [Concomitant]
     Route: 048
     Dates: start: 20191127, end: 20191202
  9. OMEPRAZOLE SODIUM [Concomitant]
     Active Substance: OMEPRAZOLE SODIUM
     Route: 042
     Dates: start: 20191126, end: 20191126
  10. LOXOPROFEN SODIUM [Concomitant]
     Active Substance: LOXOPROFEN SODIUM
     Indication: POSTOPERATIVE ANALGESIA
     Route: 050
     Dates: start: 20201127, end: 20201127
  11. CEFUROXIME SODIUM FOR INJECTION [Concomitant]
     Active Substance: CEFUROXIME SODIUM
     Route: 050
     Dates: start: 20201127, end: 20201127
  12. PULMICORT RESPULES [Concomitant]
     Active Substance: BUDESONIDE
     Route: 048
     Dates: start: 20191129, end: 20191204
  13. BRICANYL [Concomitant]
     Active Substance: TERBUTALINE SULFATE
     Route: 048
     Dates: start: 20191129, end: 20191204
  14. PREGABALIN. [Concomitant]
     Active Substance: PREGABALIN
     Indication: PAIN
     Route: 048
     Dates: start: 20191203, end: 20191203
  15. OXYCODONE AND ACETAMINOPHEN [Concomitant]
     Active Substance: ACETAMINOPHEN\OXYCODONE HYDROCHLORIDE
     Indication: HAEMOPHILIC ARTHROPATHY
     Route: 048
     Dates: start: 2018
  16. ONDANSETRON HYDROCHLORIDE. [Concomitant]
     Active Substance: ONDANSETRON HYDROCHLORIDE
     Indication: VOMITING
     Route: 030
     Dates: start: 20191126, end: 20191126
  17. TRANEXAMIC ACID. [Concomitant]
     Active Substance: TRANEXAMIC ACID
     Indication: HAEMORRHAGE
     Dosage: 1 OTHER
     Route: 050
     Dates: start: 20191127, end: 20191127
  18. LACTULOSE. [Concomitant]
     Active Substance: LACTULOSE
     Route: 048
     Dates: start: 20191201, end: 20191204
  19. GLUCOSE AND SODIUM CHLORIDE [Concomitant]
     Active Substance: DEXTROSE\SODIUM CHLORIDE
     Dosage: 1 OTHER
     Route: 050
     Dates: start: 20191126, end: 20191126
  20. CAPTOPRIL. [Concomitant]
     Active Substance: CAPTOPRIL
     Indication: HYPERTENSION
     Route: 048
     Dates: start: 20191127, end: 20191127
  21. WHOLE BLOOD [Concomitant]
     Active Substance: WHOLE BLOOD
     Indication: ANAEMIA
     Route: 050
     Dates: start: 20191126, end: 20191126
  22. FACTOR VIII [Concomitant]
     Active Substance: ANTIHEMOPHILIC FACTOR HUMAN
     Indication: HAEMOPHILIA
  23. OMEPRAZOLE SODIUM [Concomitant]
     Active Substance: OMEPRAZOLE SODIUM
     Route: 050
     Dates: start: 20201127, end: 20201128
  24. CALCIUM GLUCONATE. [Concomitant]
     Active Substance: CALCIUM GLUCONATE
     Route: 050
     Dates: start: 20191126, end: 20191126
  25. GLUCOSE AND SODIUM CHLORIDE [Concomitant]
     Active Substance: DEXTROSE\SODIUM CHLORIDE
     Route: 048
     Dates: start: 20191126, end: 20191126
  26. BUPRENORPHINE. [Concomitant]
     Active Substance: BUPRENORPHINE
     Indication: PAIN
     Dosage: 1 OTHER
     Route: 062
     Dates: start: 20191127, end: 20191127
  27. PLASMA [Concomitant]
     Active Substance: HUMAN PLASMA
     Indication: ANAEMIA
     Route: 050
     Dates: start: 20191126, end: 20191126
  28. DEXAMETHASONE SODIUM PHOSPHATE. [Concomitant]
     Active Substance: DEXAMETHASONE SODIUM PHOSPHATE
     Route: 042
     Dates: start: 20191126, end: 20191126
  29. PETHIDINE HYDROCHLORIDE [Concomitant]
     Active Substance: MEPERIDINE HYDROCHLORIDE
     Indication: PAIN
     Route: 048
     Dates: start: 20191126, end: 20191126
  30. OXYCONTIN [Concomitant]
     Active Substance: OXYCODONE HYDROCHLORIDE
     Indication: PAIN
     Route: 048
     Dates: start: 201907
  31. ONDANSETRON HYDROCHLORIDE. [Concomitant]
     Active Substance: ONDANSETRON HYDROCHLORIDE
     Indication: MASS
     Route: 048
     Dates: start: 20191127, end: 20191127
  32. PARACETAMOL [Concomitant]
     Active Substance: ACETAMINOPHEN
     Indication: MASS
     Route: 048
     Dates: start: 20191127, end: 20191127
  33. CEFUROXIME SODIUM FOR INJECTION [Concomitant]
     Active Substance: CEFUROXIME SODIUM
     Route: 030
     Dates: start: 20191126, end: 20191126
  34. CEFUROXIME SODIUM FOR INJECTION [Concomitant]
     Active Substance: CEFUROXIME SODIUM
     Route: 050
     Dates: start: 20191126, end: 20191126
  35. GLUCOSE [Concomitant]
     Active Substance: DEXTROSE
     Dosage: 1 OTHER
     Route: 050
     Dates: start: 20201126, end: 20201127
  36. SODIUM CHLORIDE. [Concomitant]
     Active Substance: SODIUM CHLORIDE
     Route: 050
     Dates: start: 20191127, end: 20191204
  37. TRAMADOL HYDROCHLORIDE. [Concomitant]
     Active Substance: TRAMADOL HYDROCHLORIDE
     Indication: PAIN
     Route: 030
     Dates: start: 20191202, end: 20191202
  38. IRON SUCROSE [Concomitant]
     Active Substance: IRON SUCROSE
     Indication: ANAEMIA
     Route: 050
     Dates: start: 20201127, end: 20201130
  39. ACETYLCYSTEINE. [Concomitant]
     Active Substance: ACETYLCYSTEINE
     Route: 048
     Dates: start: 20191129, end: 20191204
  40. LYRICA [Concomitant]
     Active Substance: PREGABALIN
     Indication: PAIN
     Route: 048
     Dates: start: 20191203, end: 20191204
  41. MECOBALAMIN [Concomitant]
     Active Substance: METHYLCOBALAMIN
     Route: 048
     Dates: start: 20191203, end: 20191204
  42. EMICIZUMAB. [Suspect]
     Active Substance: EMICIZUMAB
     Indication: FACTOR VIII DEFICIENCY
     Dosage: DATE OF MOST RECENT DOSE OF EMICIZUMAB 117 MG PRIOR TO AE/SAE ONSET: 18/SEP/2019.?ON 21/AUG/2018, PA
     Route: 058
     Dates: start: 20180724
  43. NORVASC [Concomitant]
     Active Substance: AMLODIPINE BESYLATE
     Indication: HYPERTENSION
     Route: 048
     Dates: start: 20190430
  44. LOXOPROFEN SODIUM [Concomitant]
     Active Substance: LOXOPROFEN SODIUM
     Route: 048
     Dates: start: 20191126, end: 20191126
  45. POTASSIUM CHLORIDE. [Concomitant]
     Active Substance: POTASSIUM CHLORIDE
     Dosage: 1 AMPULE
     Route: 050
     Dates: start: 20191126, end: 20191127
  46. TRANEXAMIC ACID. [Concomitant]
     Active Substance: TRANEXAMIC ACID
     Route: 048
     Dates: start: 20191126, end: 20191126
  47. LACTULOSE. [Concomitant]
     Active Substance: LACTULOSE
     Route: 048
     Dates: start: 20191201, end: 20191201

REACTIONS (1)
  - Mass [Not Recovered/Not Resolved]

NARRATIVE: CASE EVENT DATE: 20190920
